FAERS Safety Report 7739884-8 (Version None)
Quarter: 2011Q3

REPORT INFORMATION
  Report Type: 
  Country: None (occurrence: None)
  Receive Date: 20110909
  Receipt Date: 20110830
  Transmission Date: 20111222
  Serious: Yes (Hospitalization, Other)
  Sender: FDA-Public Use
  Company Number: PHHY2008FR22929

PATIENT
  Sex: Female

DRUGS (12)
  1. ATENOLOL [Concomitant]
     Dosage: 25 MG, QD
  2. IMATINIB MESYLATE [Suspect]
     Indication: CHRONIC MYELOID LEUKAEMIA
     Dosage: 400 MG DAILY
  3. IMOVANE [Concomitant]
     Dosage: 2 DF, DAILY
  4. ASPIRIN [Concomitant]
     Dosage: 75 MG, QD
  5. FERROUS SULFATE TAB [Concomitant]
     Dosage: 80 MG, QD
  6. CALCIUM CARBONATE [Concomitant]
     Dosage: 1 DF, DAILY
  7. FLECAINIDE ACETATE [Concomitant]
     Dosage: 100 MG, QD
  8. HYDROCORTISONE [Concomitant]
     Dosage: 10 MG 3 DF, DAILY
  9. PRAVASTATIN SODIUM [Concomitant]
     Dosage: 10 MG, QD
  10. CITALOPRAM HYDROBROMIDE [Concomitant]
     Dosage: 20 MG, QD
  11. FLUDROCORTISONE ACETATE [Concomitant]
     Dosage: 75 MICROGRAMS DAILY
  12. ACETAMINOPHEN W/ PROPOXYPHENE HCL [Concomitant]
     Dosage: 6 DF, DAILY

REACTIONS (21)
  - VITAMIN B12 DEFICIENCY [None]
  - ASTHENIA [None]
  - FAECES DISCOLOURED [None]
  - CONFUSIONAL STATE [None]
  - CULTURE URINE POSITIVE [None]
  - BLOOD PRESSURE DECREASED [None]
  - PYELONEPHRITIS ACUTE [None]
  - GENERAL PHYSICAL HEALTH DETERIORATION [None]
  - MALAISE [None]
  - INFLAMMATION [None]
  - DIARRHOEA [None]
  - CARDIOMEGALY [None]
  - ANAEMIA MACROCYTIC [None]
  - ESCHERICHIA URINARY TRACT INFECTION [None]
  - TREMOR [None]
  - PYREXIA [None]
  - HEART SOUNDS ABNORMAL [None]
  - FLATULENCE [None]
  - CREPITATIONS [None]
  - SEPSIS [None]
  - CHILLS [None]
